FAERS Safety Report 8205121-3 (Version None)
Quarter: 2012Q1

REPORT INFORMATION
  Report Type: 
  Country: None (occurrence: None)
  Receive Date: 20120313
  Receipt Date: 20120309
  Transmission Date: 20120608
  Serious: Yes (Hospitalization)
  Sender: FDA-Public Use
  Company Number: US-GLAXOSMITHKLINE-A0939422A

PATIENT
  Age: 19 Year
  Sex: Male

DRUGS (8)
  1. EFFEXOR [Concomitant]
  2. VITAMIN E [Concomitant]
  3. RISPERDAL [Concomitant]
  4. INDERAL [Concomitant]
  5. FISH OIL [Concomitant]
  6. LAMICTAL [Suspect]
     Indication: BIPOLAR DISORDER
     Dosage: 300MG PER DAY
     Route: 048
     Dates: end: 20080701
  7. NAMENDA [Concomitant]
  8. ABILIFY [Concomitant]

REACTIONS (2)
  - EYE INFECTION STAPHYLOCOCCAL [None]
  - STEVENS-JOHNSON SYNDROME [None]
